FAERS Safety Report 9704166 (Version 1)
Quarter: 2013Q4

REPORT INFORMATION
  Report Type: Spontaneous
  Country: US (occurrence: US)
  Receive Date: 20131122
  Receipt Date: 20131122
  Transmission Date: 20140711
  Serious: Yes (Other)
  Sender: FDA-Public Use
  Company Number: US-SA-2013SA120807

PATIENT
  Sex: Male

DRUGS (1)
  1. LANTUS [Suspect]
     Dosage: 85 CC DOSE:85 NOT APPLICABLE
     Route: 058

REACTIONS (2)
  - Loss of consciousness [Unknown]
  - Underdose [Unknown]
